FAERS Safety Report 6135490-X (Version None)
Quarter: 2009Q1

REPORT INFORMATION
  Report Type: 
  Country: None (occurrence: None)
  Receive Date: 20090327
  Receipt Date: 20090320
  Transmission Date: 20090719
  Serious: Yes (Death, Hospitalization)
  Sender: FDA-Public Use
  Company Number: A0775661A

PATIENT
  Age: 45 Year
  Sex: Male
  Weight: 102.3 kg

DRUGS (3)
  1. AVANDIA [Suspect]
     Dosage: 8MG PER DAY
     Route: 048
     Dates: start: 20000101, end: 20061201
  2. GLUCOPHAGE [Concomitant]
     Dates: start: 19970101, end: 20060101
  3. GLYBURIDE [Concomitant]
     Dates: start: 20061101

REACTIONS (3)
  - CHEST PAIN [None]
  - CORONARY ARTERY DISEASE [None]
  - MYOCARDIAL INFARCTION [None]
